FAERS Safety Report 8362775-9 (Version None)
Quarter: 2012Q2

REPORT INFORMATION
  Report Type: 
  Country: None (occurrence: None)
  Receive Date: 20120516
  Receipt Date: 20120509
  Transmission Date: 20120825
  Serious: Yes (Hospitalization, Other)
  Sender: FDA-Public Use
  Company Number: PHHY2012MX040669

PATIENT
  Sex: Female

DRUGS (2)
  1. RITALIN [Suspect]
     Indication: ATTENTION DEFICIT/HYPERACTIVITY DISORDER
     Dosage: 2.5 MG, UNK
     Dates: start: 20120313, end: 20120429
  2. TRILEPTAL [Suspect]
     Dosage: 2.5 ML, DAILY
     Dates: start: 20111214, end: 20120425

REACTIONS (5)
  - CONVULSION [None]
  - HEPATITIS [None]
  - EATING DISORDER [None]
  - SYNCOPE [None]
  - PLATELET COUNT DECREASED [None]
